FAERS Safety Report 17183080 (Version 1)
Quarter: 2019Q4

REPORT INFORMATION
  Report Type: Spontaneous
  Country: JP (occurrence: JP)
  Receive Date: 20191220
  Receipt Date: 20191220
  Transmission Date: 20200122
  Serious: Yes (Hospitalization, Other)
  Sender: FDA-Public Use
  Company Number: JP-ROCHE-2503552

PATIENT
  Age: 72 Year
  Sex: Male

DRUGS (1)
  1. LUCENTIS [Suspect]
     Active Substance: RANIBIZUMAB
     Indication: AGE-RELATED MACULAR DEGENERATION
     Route: 050
     Dates: start: 20191126

REACTIONS (6)
  - Atrial fibrillation [Unknown]
  - Balance disorder [Recovering/Resolving]
  - Gait disturbance [Unknown]
  - Haemorrhagic cerebral infarction [Not Recovered/Not Resolved]
  - Dizziness [Recovering/Resolving]
  - Ataxia [Recovering/Resolving]

NARRATIVE: CASE EVENT DATE: 20191127
